FAERS Safety Report 14298730 (Version 2)
Quarter: 2018Q1

REPORT INFORMATION
  Report Type: Spontaneous
  Country: US (occurrence: US)
  Receive Date: 20171218
  Receipt Date: 20180129
  Transmission Date: 20180509
  Serious: Yes (Hospitalization)
  Sender: FDA-Public Use
  Company Number: US-VIFOR (INTERNATIONAL) INC.-VIT-2017-13423

PATIENT
  Age: 69 Year
  Sex: Male
  Weight: 113.5 kg

DRUGS (5)
  1. CYMBALTA [Concomitant]
     Active Substance: DULOXETINE HYDROCHLORIDE
  2. VELTASSA [Suspect]
     Active Substance: PATIROMER
     Indication: HYPERKALAEMIA
     Route: 048
     Dates: start: 20170915
  3. AMLODIPINE BESILATE [Concomitant]
     Active Substance: AMLODIPINE BESYLATE
  4. PARICALCITOL. [Concomitant]
     Active Substance: PARICALCITOL
  5. ZEMPLAR [Concomitant]
     Active Substance: PARICALCITOL

REACTIONS (1)
  - Spinal column injury [Recovered/Resolved]

NARRATIVE: CASE EVENT DATE: 201711
